FAERS Safety Report 5247667-6 (Version None)
Quarter: 2007Q1

REPORT INFORMATION
  Report Type: 
  Country: None (occurrence: None)
  Receive Date: 20070227
  Receipt Date: 20070129
  Transmission Date: 20070707
  Serious: Yes (Death, Hospitalization)
  Sender: FDA-Public Use
  Company Number: SE-ROCHE-418344

PATIENT
  Age: 35 Year
  Sex: Male

DRUGS (19)
  1. CYMEVENE [Suspect]
     Indication: CYTOMEGALOVIRUS GASTROINTESTINAL INFECTION
     Route: 042
     Dates: start: 20050927
  2. CYMEVENE [Suspect]
     Route: 042
     Dates: start: 20050914, end: 20050916
  3. CYMEVENE [Suspect]
     Dosage: TREATMENT FOR REACTIVATED CMV INFECTION.
     Route: 042
     Dates: start: 20050902, end: 20050909
  4. KONAKION [Suspect]
     Indication: DRUG USE FOR UNKNOWN INDICATION
     Route: 065
  5. BACTRIM [Suspect]
     Indication: DRUG USE FOR UNKNOWN INDICATION
     Route: 065
  6. URSO FALK [Concomitant]
  7. SOLU-MEDROL [Concomitant]
     Dosage: POWDER AND SOLVENT FOR SOLUTION FOR INJECTION
  8. CALCIUM-SANDOZ [Concomitant]
  9. PRECORTALON [Concomitant]
     Dosage: TRADE NAME = PRECORTALON AQUOSUM
  10. DICLOCIL [Concomitant]
  11. SANDIMMUNE [Concomitant]
  12. DIFLUCAN [Concomitant]
  13. LOSEC [Concomitant]
     Dosage: POWDER FOR SOLUTION FOR INFUSION
  14. ACETYLCYSTEINE [Concomitant]
  15. NAVOBAN [Concomitant]
  16. ALBUMIN (HUMAN) [Concomitant]
  17. ENTOCORT [Concomitant]
  18. FURIX [Concomitant]
  19. MYCOSTATIN [Concomitant]

REACTIONS (29)
  - ABDOMINAL DISTENSION [None]
  - ANXIETY [None]
  - BLOOD BILIRUBIN INCREASED [None]
  - C-REACTIVE PROTEIN INCREASED [None]
  - CYTOMEGALOVIRUS TEST [None]
  - DYSPNOEA [None]
  - EPSTEIN-BARR VIRUS INFECTION [None]
  - GASTROINTESTINAL HAEMORRHAGE [None]
  - HEPATIC FAILURE [None]
  - HYPERBILIRUBINAEMIA [None]
  - HYPOTONIA [None]
  - ILEUS [None]
  - LEUKOPENIA [None]
  - LOSS OF CONSCIOUSNESS [None]
  - MELAENA [None]
  - MULTI-ORGAN FAILURE [None]
  - NEUROLOGICAL SYMPTOM [None]
  - OEDEMA PERIPHERAL [None]
  - PAIN [None]
  - PETECHIAE [None]
  - PURPURA [None]
  - RASH [None]
  - RED BLOOD CELL SCHISTOCYTES PRESENT [None]
  - RENAL FAILURE [None]
  - RESPIRATORY TRACT HAEMORRHAGE [None]
  - SOMNOLENCE [None]
  - TACHYCARDIA [None]
  - TACHYPNOEA [None]
  - THROMBOTIC THROMBOCYTOPENIC PURPURA [None]
